FAERS Safety Report 18465824 (Version 1)
Quarter: 2020Q4

REPORT INFORMATION
  Report Type: Other
  Country: DE (occurrence: DE)
  Receive Date: 20201105
  Receipt Date: 20201105
  Transmission Date: 20210114
  Serious: No
  Sender: FDA-Public Use
  Company Number: DE-LUPIN PHARMACEUTICALS INC.-2020-03961

PATIENT
  Age: 61 Year
  Sex: Female
  Weight: 86 kg

DRUGS (4)
  1. SIMVASTATIN. [Suspect]
     Active Substance: SIMVASTATIN
     Indication: LIPID METABOLISM DISORDER
     Dosage: 40 MILLIGRAM, QD
     Route: 048
     Dates: start: 201510
  2. FENOFIBRATE. [Concomitant]
     Active Substance: FENOFIBRATE
     Indication: LIPID METABOLISM DISORDER
     Dosage: UNK
     Route: 065
     Dates: start: 201705
  3. ATORVASTATIN [Concomitant]
     Active Substance: ATORVASTATIN
     Indication: LIPID METABOLISM DISORDER
     Dosage: UNK
     Route: 065
     Dates: start: 2016
  4. EZETIMIBE. [Concomitant]
     Active Substance: EZETIMIBE
     Indication: LIPID METABOLISM DISORDER
     Dosage: UNK
     Route: 065
     Dates: start: 201601

REACTIONS (2)
  - Myalgia [Recovered/Resolved]
  - Arthralgia [Recovered/Resolved]
